FAERS Safety Report 9172983 (Version 3)
Quarter: 2013Q4

REPORT INFORMATION
  Report Type: Spontaneous
  Country: US (occurrence: None)
  Receive Date: 20130313
  Receipt Date: 20131023
  Transmission Date: 20140711
  Serious: Yes (Other)
  Sender: FDA-Public Use
  Company Number: ADR-2013-00409

PATIENT
  Sex: Male

DRUGS (2)
  1. LIORESAL [Suspect]
     Indication: MUSCLE SPASTICITY
     Dosage: 576 MGC/DAY
  2. BACLOFEN [Suspect]

REACTIONS (4)
  - Fall [None]
  - Muscle spasms [None]
  - Feeling abnormal [None]
  - Muscle spasticity [None]
